FAERS Safety Report 21380759 (Version 2)
Quarter: 2024Q4

REPORT INFORMATION
  Report Type: Spontaneous
  Country: IN (occurrence: IN)
  Receive Date: 20220927
  Receipt Date: 20241210
  Transmission Date: 20250114
  Serious: Yes (Death, Other)
  Sender: PFIZER
  Company Number: IN-PFIZER INC-2021008615

PATIENT
  Age: 58 Year
  Sex: Female

DRUGS (3)
  1. PALBOCICLIB [Suspect]
     Active Substance: PALBOCICLIB
     Dosage: DAILY 3/1 SCHEME
     Route: 048
     Dates: start: 20200526
  2. FULVESTRANT [Concomitant]
     Active Substance: FULVESTRANT
     Dosage: 500 MG, WEEKLY
     Route: 030
  3. CCM [Concomitant]
     Dosage: UNK, DAILY

REACTIONS (16)
  - Death [Fatal]
  - Rectal haemorrhage [Unknown]
  - Neoplasm progression [Unknown]
  - Hypoaesthesia [Unknown]
  - Back pain [Unknown]
  - Asthenia [Unknown]
  - Haematuria [Unknown]
  - Swelling face [Unknown]
  - Pain in jaw [Unknown]
  - Oral pain [Unknown]
  - Hypophagia [Unknown]
  - Pruritus [Unknown]
  - Pallor [Unknown]
  - Weight fluctuation [Unknown]
  - Platelet count decreased [Unknown]
  - Haemoglobin decreased [Unknown]
